FAERS Safety Report 4776907-2 (Version None)
Quarter: 2005Q3

REPORT INFORMATION
  Report Type: 
  Country: None (occurrence: None)
  Receive Date: 20050921
  Receipt Date: 20050921
  Transmission Date: 20060218
  Serious: Yes (Hospitalization)
  Sender: FDA-Public Use
  Company Number: None

PATIENT
  Age: 63 Year
  Sex: Male
  Weight: 90.3 kg

DRUGS (11)
  1. BEVACIZUMAB [Suspect]
     Indication: NON-SMALL CELL LUNG CANCER
     Dosage: 15MG/KG IV
     Route: 042
     Dates: start: 20050616, end: 20050707
  2. ERLOTINIB [Suspect]
     Indication: NON-SMALL CELL LUNG CANCER
     Dosage: 100MG PO
     Route: 048
     Dates: start: 20050616, end: 20050707
  3. PREDNISONE [Concomitant]
  4. QUINAPRIL [Concomitant]
  5. LIPITOR [Concomitant]
  6. FOLIC ACID [Concomitant]
  7. IBUPROFEN [Concomitant]
  8. .. [Concomitant]
  9. LOVENOX [Concomitant]
  10. .. [Concomitant]
  11. .. [Concomitant]

REACTIONS (10)
  - FIBRIN D DIMER INCREASED [None]
  - LYMPHADENOPATHY [None]
  - LYMPHANGIOSIS CARCINOMATOSA [None]
  - MALIGNANT NEOPLASM PROGRESSION [None]
  - MESOTHELIOMA [None]
  - METASTATIC NEOPLASM [None]
  - PERITONEAL DISORDER [None]
  - PULMONARY EMBOLISM [None]
  - RASH [None]
  - SKIN TOXICITY [None]
